FAERS Safety Report 17562165 (Version 1)
Quarter: 2020Q1

REPORT INFORMATION
  Report Type: Spontaneous
  Country: IT (occurrence: IT)
  Receive Date: 20200319
  Receipt Date: 20200319
  Transmission Date: 20200409
  Serious: Yes (Other)
  Sender: FDA-Public Use
  Company Number: IT-MYLANLABS-2020M1028499

PATIENT

DRUGS (10)
  1. LEUCOVORIN                         /00566701/ [Suspect]
     Active Substance: LEUCOVORIN
     Indication: B-CELL LYMPHOMA
     Dosage: 6 HOURLY FOR 4 DOSES, BEGINNING 24 HOURS AFTER METHOTREXATE (PROMACE-CYTABOM COMBINATION)
     Route: 048
  2. VINCRISTINE [Suspect]
     Active Substance: VINCRISTINE
     Indication: B-CELL LYMPHOMA
     Dosage: A MAXIMUM DOSE OF 2.0 MG (PROMACE-CYTABOM COMBINATION) DAY 8
     Route: 042
  3. PREDNISONE. [Suspect]
     Active Substance: PREDNISONE
     Indication: B-CELL LYMPHOMA
     Dosage: ON DAY 1-14 (PROMACE-CYTABOM COMBINATION)
     Route: 048
  4. COTRIMOXAZOLE [Concomitant]
     Active Substance: SULFAMETHOXAZOLE\TRIMETHOPRIM
     Indication: PROPHYLAXIS
     Dosage: TWO DOUBLE-STRENGTH TABLETS TWICE DAILY THROUGHOUT COURSE OF TREATMENT
     Route: 048
  5. BLEOMYCIN [Suspect]
     Active Substance: BLEOMYCIN SULFATE
     Indication: B-CELL LYMPHOMA
     Dosage: PROMACE-CYTABOM COMBINATION DAY 8
     Route: 042
  6. ENDOXAN                            /00021102/ [Suspect]
     Active Substance: CYCLOPHOSPHAMIDE
     Indication: B-CELL LYMPHOMA
     Dosage: PROMACE-CYTABOM COMBINATION DAY 1
     Route: 042
  7. METHOTREXATE. [Suspect]
     Active Substance: METHOTREXATE
     Indication: B-CELL LYMPHOMA
     Dosage: ON DAY 8 (PROMACE-CYTABOM COMBINATION)
     Route: 042
  8. ETOPOSIDE. [Suspect]
     Active Substance: ETOPOSIDE
     Indication: B-CELL LYMPHOMA
     Dosage: ETOPOSIDE VP-16 ON DAY 1 (PROMACE-CYTABOM COMBINATION)
     Route: 042
  9. CYTOSINE ARABINOSIDE [Suspect]
     Active Substance: CYTARABINE
     Indication: B-CELL LYMPHOMA
     Dosage: PROMACE-CYTABOM COMBINATION DAY 8
     Route: 042
  10. DOXORUBICIN [Suspect]
     Active Substance: DOXORUBICIN
     Indication: B-CELL LYMPHOMA
     Dosage: PROMACE-CYTABOM COMBINATION DAY 1
     Route: 042

REACTIONS (1)
  - Neutropenia [Unknown]
